FAERS Safety Report 12070163 (Version 2)
Quarter: 2016Q2

REPORT INFORMATION
  Report Type: Report from Study
  Country: US (occurrence: US)
  Receive Date: 20160211
  Receipt Date: 20160523
  Transmission Date: 20160815
  Serious: Yes (Disabling, Other)
  Sender: FDA-Public Use
  Company Number: US-NAPPMUNDI-USA-2016-0128945

PATIENT
  Sex: Male
  Weight: 125.17 kg

DRUGS (3)
  1. OXYCONTIN [Suspect]
     Active Substance: OXYCODONE HYDROCHLORIDE
     Dosage: 4-5 X 80 MG, BID
     Route: 048
  2. OXYCONTIN [Suspect]
     Active Substance: OXYCODONE HYDROCHLORIDE
     Indication: BACK DISORDER
     Dosage: UNK
     Route: 048
     Dates: start: 2001
  3. OXYCONTIN [Suspect]
     Active Substance: OXYCODONE HYDROCHLORIDE
     Dosage: 4X 80  MG, Q8H
     Route: 048
     Dates: start: 200505

REACTIONS (2)
  - Brain neoplasm benign [Recovered/Resolved with Sequelae]
  - Unevaluable event [Unknown]

NARRATIVE: CASE EVENT DATE: 2003
